FAERS Safety Report 18660295 (Version 13)
Quarter: 2025Q1

REPORT INFORMATION
  Report Type: Report from Study
  Country: US (occurrence: US)
  Receive Date: 20201224
  Receipt Date: 20250306
  Transmission Date: 20250409
  Serious: Yes (Other)
  Sender: TAKEDA
  Company Number: US-TAKEDA-2018TUS000519

PATIENT
  Sex: Male

DRUGS (24)
  1. PONATINIB [Suspect]
     Active Substance: PONATINIB
     Indication: Chronic myeloid leukaemia
     Dosage: 30 MILLIGRAM, QD
     Dates: start: 201403
  2. PONATINIB [Suspect]
     Active Substance: PONATINIB
     Dosage: 30 MILLIGRAM, QD
  3. PONATINIB [Suspect]
     Active Substance: PONATINIB
     Dosage: 15 MILLIGRAM, QD
  4. PONATINIB [Suspect]
     Active Substance: PONATINIB
     Dosage: 15 MILLIGRAM, QD
  5. PONATINIB [Suspect]
     Active Substance: PONATINIB
     Dosage: 15 MILLIGRAM, QD
  6. PONATINIB [Suspect]
     Active Substance: PONATINIB
     Dosage: 15 MILLIGRAM, QD
  7. PONATINIB [Suspect]
     Active Substance: PONATINIB
     Dosage: 10 MILLIGRAM, QD
  8. PONATINIB [Suspect]
     Active Substance: PONATINIB
     Dosage: 10 MILLIGRAM, QD
  9. ABILIFY [Concomitant]
     Active Substance: ARIPIPRAZOLE
  10. KLONOPIN [Concomitant]
     Active Substance: CLONAZEPAM
  11. LAMICTAL [Concomitant]
     Active Substance: LAMOTRIGINE
  12. ZOLOFT [Concomitant]
     Active Substance: SERTRALINE HYDROCHLORIDE
  13. CLONAZEPAM [Concomitant]
     Active Substance: CLONAZEPAM
  14. HYDROCHLOROTHIAZIDE [Concomitant]
     Active Substance: HYDROCHLOROTHIAZIDE
  15. HYDRALAZINE HCL [Concomitant]
     Active Substance: HYDRALAZINE HYDROCHLORIDE
  16. AMLODIPINE BESYLATE [Concomitant]
     Active Substance: AMLODIPINE BESYLATE
  17. METOPROLOL SUCCINATE [Concomitant]
     Active Substance: METOPROLOL SUCCINATE
  18. CHLORTHALIDONE [Concomitant]
     Active Substance: CHLORTHALIDONE
  19. LANTUS [Concomitant]
     Active Substance: INSULIN GLARGINE
  20. FARXIGA [Concomitant]
     Active Substance: DAPAGLIFLOZIN PROPANEDIOL
  21. OXYCODONE AND ACETAMINOPHEN [Concomitant]
     Active Substance: ACETAMINOPHEN\OXYCODONE HYDROCHLORIDE
  22. OZEMPIC [Concomitant]
     Active Substance: SEMAGLUTIDE
  23. METHYLPHENIDATE HYDROCHLORIDE [Concomitant]
     Active Substance: METHYLPHENIDATE HYDROCHLORIDE
  24. CANNABIDIOL [Concomitant]
     Active Substance: CANNABIDIOL

REACTIONS (36)
  - Pancreatitis [Recovering/Resolving]
  - Sciatica [Unknown]
  - Type 2 diabetes mellitus [Unknown]
  - Respiratory tract infection [Recovered/Resolved]
  - Arthropathy [Unknown]
  - Pulmonary congestion [Unknown]
  - Erectile dysfunction [Unknown]
  - Feeling abnormal [Unknown]
  - Libido decreased [Unknown]
  - Somnolence [Unknown]
  - Chest pain [Unknown]
  - Insomnia [Unknown]
  - Night sweats [Unknown]
  - Blood pressure increased [Unknown]
  - Back pain [Unknown]
  - Asthenia [Unknown]
  - Pain [Unknown]
  - Dyspnoea [Unknown]
  - Constipation [Unknown]
  - Hypertension [Unknown]
  - Fatigue [Unknown]
  - Attention deficit hyperactivity disorder [Unknown]
  - Fall [Unknown]
  - Exercise tolerance decreased [Unknown]
  - Nasopharyngitis [Unknown]
  - Blood iron decreased [Unknown]
  - Influenza [Recovered/Resolved]
  - Depression [Unknown]
  - Muscular weakness [Unknown]
  - Tremor [Unknown]
  - Balance disorder [Unknown]
  - Urinary tract infection [Recovered/Resolved]
  - Anxiety [Unknown]
  - Malaise [Unknown]
  - Product dose omission issue [Unknown]
  - Product use issue [Unknown]
